FAERS Safety Report 9606594 (Version 2)
Quarter: 2013Q4

REPORT INFORMATION
  Report Type: Spontaneous
  Country: US (occurrence: US)
  Receive Date: 20131008
  Receipt Date: 20131008
  Transmission Date: 20140711
  Serious: No
  Sender: FDA-Public Use
  Company Number: US-AMGEN-USASP2013055195

PATIENT
  Age: 87 Year
  Sex: Female

DRUGS (6)
  1. PROLIA [Suspect]
     Indication: PRODUCT USED FOR UNKNOWN INDICATION
     Dosage: UNK
     Route: 065
  2. LISINOPRIL [Concomitant]
  3. CALCIUM [Concomitant]
  4. VITAMIN D                          /00318501/ [Concomitant]
  5. TYLENOL                            /00020001/ [Concomitant]
  6. ALEVE [Concomitant]

REACTIONS (6)
  - Rash [Recovered/Resolved]
  - Skin lesion [Not Recovered/Not Resolved]
  - Burning sensation [Not Recovered/Not Resolved]
  - Impaired healing [Not Recovered/Not Resolved]
  - Pruritus [Not Recovered/Not Resolved]
  - Secretion discharge [Not Recovered/Not Resolved]
